FAERS Safety Report 6902681-7 (Version None)
Quarter: 2010Q3

REPORT INFORMATION
  Report Type: 
  Country: None (occurrence: None)
  Receive Date: 20100803
  Receipt Date: 20080825
  Transmission Date: 20110219
  Serious: No
  Sender: FDA-Public Use
  Company Number: US-PFIZER INC-2008052581

PATIENT
  Sex: Male
  Weight: 117.93 kg

DRUGS (12)
  1. LYRICA [Suspect]
     Indication: DIABETIC NEUROPATHY
     Dates: start: 20080619
  2. INSULIN GLARGINE [Concomitant]
  3. INSULIN HUMAN [Concomitant]
  4. FUROSEMIDE [Concomitant]
  5. NORVASC [Concomitant]
  6. ISOSORBIDE [Concomitant]
  7. GLUCOPHAGE [Concomitant]
  8. TOPROL-XL [Concomitant]
  9. VASOTEC [Concomitant]
  10. DIGOXIN [Concomitant]
  11. ZOCOR [Concomitant]
  12. ACETYLSALICYLIC ACID SRT [Concomitant]

REACTIONS (3)
  - BALANCE DISORDER [None]
  - DIZZINESS [None]
  - INCORRECT DOSE ADMINISTERED [None]
